FAERS Safety Report 14964295 (Version 1)
Quarter: 2018Q2

REPORT INFORMATION
  Report Type: Spontaneous
  Country: US (occurrence: US)
  Receive Date: 20180601
  Receipt Date: 20180601
  Transmission Date: 20180711
  Serious: No
  Sender: FDA-Public Use
  Company Number: US-BAYER-2018-101390

PATIENT

DRUGS (1)
  1. ULTRAVIST [Suspect]
     Active Substance: IOPROMIDE
     Dosage: UNK UNK, ONCE
     Dates: start: 20180518, end: 20180518

REACTIONS (3)
  - Eye pruritus [None]
  - Lip pruritus [None]
  - Urticaria [None]

NARRATIVE: CASE EVENT DATE: 20180518
